FAERS Safety Report 25620400 (Version 1)
Quarter: 2025Q3

REPORT INFORMATION
  Report Type: Spontaneous
  Country: US (occurrence: US)
  Receive Date: 20250730
  Receipt Date: 20250730
  Transmission Date: 20251021
  Serious: No
  Sender: ROCHE
  Company Number: US-ROCHE-10000351083

PATIENT
  Age: 34 Year
  Sex: Female
  Weight: 56.25 kg

DRUGS (3)
  1. OCREVUS ZUNOVO [Suspect]
     Active Substance: HYALURONIDASE-OCSQ\OCRELIZUMAB
     Indication: Relapsing-remitting multiple sclerosis
     Route: 058
     Dates: start: 20250725
  2. OCREVUS [Suspect]
     Active Substance: OCRELIZUMAB
     Indication: Relapsing-remitting multiple sclerosis
     Route: 042
     Dates: end: 2025
  3. NORETHINDRONE [Concomitant]
     Active Substance: NORETHINDRONE
     Indication: Oral contraception
     Route: 048

REACTIONS (5)
  - Injection site rash [Unknown]
  - Abdominal pain lower [Unknown]
  - Contusion [Unknown]
  - Injection site reaction [Unknown]
  - Malaise [Unknown]

NARRATIVE: CASE EVENT DATE: 20250725
